FAERS Safety Report 4382877-1 (Version None)
Quarter: 2004Q2

REPORT INFORMATION
  Report Type: 
  Country: None (occurrence: None)
  Receive Date: 20040617
  Receipt Date: 20040607
  Transmission Date: 20050107
  Serious: Yes (Death)
  Sender: FDA-Public Use
  Company Number: 163-20785-04030076

PATIENT
  Age: 68 Year
  Sex: Female

DRUGS (1)
  1. THALOMID [Suspect]
     Indication: OVARIAN CANCER
     Dosage: SEE IMAGE
     Route: 048
     Dates: start: 20030807, end: 20030821

REACTIONS (5)
  - DIZZINESS [None]
  - MALIGNANT NEOPLASM PROGRESSION [None]
  - OVARIAN CANCER METASTATIC [None]
  - RASH ERYTHEMATOUS [None]
  - VERTIGO [None]
